FAERS Safety Report 6033639-0 (Version None)
Quarter: 2009Q1

REPORT INFORMATION
  Report Type: 
  Country: None (occurrence: None)
  Receive Date: 20090109
  Receipt Date: 20090106
  Transmission Date: 20090719
  Serious: Yes (Other)
  Sender: FDA-Public Use
  Company Number: US-BAXTER-2008BH014158

PATIENT

DRUGS (3)
  1. SODIUM CHLORIDE [Suspect]
     Indication: DRUG USE FOR UNKNOWN INDICATION
     Route: 042
     Dates: start: 20081118, end: 20081118
  2. FENTANYL CITRATE [Suspect]
     Indication: DRUG USE FOR UNKNOWN INDICATION
     Route: 042
     Dates: start: 20081118, end: 20081118
  3. DROPERIDOL [Suspect]
     Indication: DRUG USE FOR UNKNOWN INDICATION
     Route: 042
     Dates: start: 20081118, end: 20081118

REACTIONS (2)
  - INCORRECT DRUG ADMINISTRATION RATE [None]
  - RESPIRATORY DEPRESSION [None]
